FAERS Safety Report 5701247-4 (Version None)
Quarter: 2008Q2

REPORT INFORMATION
  Report Type: 
  Country: None (occurrence: None)
  Receive Date: 20080410
  Receipt Date: 20080314
  Transmission Date: 20081010
  Serious: No
  Sender: FDA-Public Use
  Company Number: US-BOEHRINGER INGELHEIM GMBH, GERMANY-2008-BP-03972BP

PATIENT
  Sex: Female

DRUGS (5)
  1. SPIRIVA [Suspect]
     Indication: CHRONIC OBSTRUCTIVE PULMONARY DISEASE
     Route: 055
     Dates: start: 20080128, end: 20080213
  2. OXYGEN [Concomitant]
  3. NORVASC [Concomitant]
  4. DUONEB [Concomitant]
  5. NITRO TABS [Concomitant]

REACTIONS (1)
  - ABDOMINAL RIGIDITY [None]
